FAERS Safety Report 6137521-X (Version None)
Quarter: 2009Q1

REPORT INFORMATION
  Report Type: 
  Country: None (occurrence: None)
  Receive Date: 20090326
  Receipt Date: 20090311
  Transmission Date: 20090719
  Serious: Yes (Other)
  Sender: FDA-Public Use
  Company Number: 2009S1004832

PATIENT
  Age: 35 Year
  Sex: Male

DRUGS (2)
  1. DICLOFENAC (DICLOFENAC) [Suspect]
     Indication: DRUG USE FOR UNKNOWN INDICATION
     Dosage: 75 MG;TWICE A DAY;ORAL
     Route: 048
  2. OMEPRAZOLE [Concomitant]

REACTIONS (4)
  - GASTROINTESTINAL EROSION [None]
  - GASTROINTESTINAL INFLAMMATION [None]
  - INTESTINAL ULCER [None]
  - PETECHIAE [None]
